FAERS Safety Report 14624517 (Version 1)
Quarter: 2018Q1

REPORT INFORMATION
  Report Type: Spontaneous
  Country: US (occurrence: US)
  Receive Date: 20180308
  Receipt Date: 20180308
  Transmission Date: 20180509
  Serious: Yes (Hospitalization)
  Sender: FDA-Public Use
  Company Number: None

PATIENT
  Age: 64 Year
  Sex: Female

DRUGS (29)
  1. DILTIAZEM. [Concomitant]
     Active Substance: DILTIAZEM
  2. MYCOPHENOLAT [Concomitant]
     Active Substance: MYCOPHENOLATE MOFETIL
  3. PROCRIT [Concomitant]
     Active Substance: ERYTHROPOIETIN
  4. BISOPROL [Concomitant]
     Active Substance: BISOPROLOL FUMARATE
  5. DILTIAZEM. [Concomitant]
     Active Substance: DILTIAZEM
  6. PROCHLORPER [Concomitant]
  7. AMOXICILLIN. [Concomitant]
     Active Substance: AMOXICILLIN
  8. PROGRAF [Suspect]
     Active Substance: TACROLIMUS\TACROLIMUS ANHYDROUS
     Indication: TRANSPLANT
     Dosage: 0.5 MG QAM BY MOUTH
     Route: 048
     Dates: start: 20150527
  9. KIONEX [Concomitant]
     Active Substance: SODIUM POLYSTYRENE SULFONATE
  10. NYSTATIN. [Concomitant]
     Active Substance: NYSTATIN
  11. CARTIA XT [Concomitant]
     Active Substance: DILTIAZEM HYDROCHLORIDE
  12. MAG CITRATE SOL LEMON [Concomitant]
  13. POLYETH GLYC [Concomitant]
     Active Substance: POLYETHYLENE GLYCOLS
  14. IBUPROFEN. [Concomitant]
     Active Substance: IBUPROFEN
  15. TYLENOL [Concomitant]
     Active Substance: ACETAMINOPHEN
  16. OXYCODONE [Concomitant]
     Active Substance: OXYCODONE
  17. SIMVASTATIN. [Concomitant]
     Active Substance: SIMVASTATIN
  18. LOSARTAN POT [Concomitant]
     Active Substance: LOSARTAN POTASSIUM
  19. PROGRAF [Suspect]
     Active Substance: TACROLIMUS\TACROLIMUS ANHYDROUS
     Indication: TRANSPLANT
     Route: 048
     Dates: start: 20150527
  20. MYCOPHENOLATE 360MG [Suspect]
     Active Substance: MYCOPHENOLIC ACID
     Indication: TRANSPLANT
     Dosage: 360 MG  2 TS AM, 1 TAB QPM BY MOUTH
     Route: 048
     Dates: start: 20150512
  21. LEVOTHYROXIN [Concomitant]
     Active Substance: LEVOTHYROXINE
  22. CARVEDILOL. [Concomitant]
     Active Substance: CARVEDILOL
  23. LOSARTAN. [Concomitant]
     Active Substance: LOSARTAN
  24. RANITIDINE. [Concomitant]
     Active Substance: RANITIDINE
  25. OMEPRAZOLE. [Concomitant]
     Active Substance: OMEPRAZOLE
  26. ONDANSETRON [Concomitant]
     Active Substance: ONDANSETRON
  27. LYRICA [Concomitant]
     Active Substance: PREGABALIN
  28. HYDROCO/APAP [Concomitant]
     Active Substance: ACETAMINOPHEN\HYDROCODONE
  29. VALCYTE [Concomitant]
     Active Substance: VALGANCICLOVIR HYDROCHLORIDE

REACTIONS (2)
  - Muscle spasms [None]
  - Pain in extremity [None]

NARRATIVE: CASE EVENT DATE: 20180307
